FAERS Safety Report 4763233-0 (Version None)
Quarter: 2005Q3

REPORT INFORMATION
  Report Type: 
  Country: None (occurrence: None)
  Receive Date: 20050902
  Receipt Date: 20050812
  Transmission Date: 20060218
  Serious: Yes (Life-Threatening)
  Sender: FDA-Public Use
  Company Number: 12020

PATIENT
  Age: 60 Year
  Sex: Female
  Weight: 76 kg

DRUGS (5)
  1. METHOTREXATE [Suspect]
     Indication: RHEUMATOID ARTHRITIS
     Dosage: 15 MG WEEKLY PO
     Route: 048
     Dates: end: 20050615
  2. NITROFURANTOIN [Concomitant]
  3. VOLTAROL [Concomitant]
  4. OMEPRAZOLE [Concomitant]
  5. FOLIC ACID [Concomitant]

REACTIONS (2)
  - LYMPHOPENIA [None]
  - PNEUMOCYSTIS JIROVECI PNEUMONIA [None]
